FAERS Safety Report 6104373-3 (Version None)
Quarter: 2009Q1

REPORT INFORMATION
  Report Type: 
  Country: None (occurrence: None)
  Receive Date: 20090302
  Receipt Date: 20090212
  Transmission Date: 20090719
  Serious: Yes (Disabling, Other)
  Sender: FDA-Public Use
  Company Number: 2009000246

PATIENT
  Age: 71 Year
  Sex: Male

DRUGS (7)
  1. MACUGEN [Suspect]
     Indication: MACULAR DEGENERATION
     Dosage: (0.3 MG), INTRA-VITREAL
     Dates: start: 20090109
  2. VERTEPROFIN (VERTEPORFIN) [Concomitant]
  3. GATIFLOXACIN [Concomitant]
  4. HIBITANE (CHLORHEXIDINE GLUCONATE) [Concomitant]
  5. ISODINE (POVIDONE-IODINE) [Concomitant]
  6. LIDOCAIN-ADRENALIN (XYLOCAINE-EPINEPHRINE) [Concomitant]
  7. GLUCOSE (GLUCOSE) [Concomitant]

REACTIONS (4)
  - MACULAR OEDEMA [None]
  - RETINAL HAEMORRHAGE [None]
  - VISUAL ACUITY REDUCED [None]
  - VITREOUS HAEMORRHAGE [None]
